FAERS Safety Report 5848351-8 (Version None)
Quarter: 2008Q3

REPORT INFORMATION
  Report Type: 
  Country: None (occurrence: None)
  Receive Date: 20080814
  Receipt Date: 20080812
  Transmission Date: 20090109
  Serious: Yes (Other)
  Sender: FDA-Public Use
  Company Number: CERZ-1000288

PATIENT
  Age: 9 Year
  Sex: Female
  Weight: 32.5 kg

DRUGS (1)
  1. CEREZYME [Suspect]
     Indication: GAUCHER'S DISEASE
     Dosage: 60 U/KG, Q2W, INTRAVENOUS
     Route: 042
     Dates: start: 20030425

REACTIONS (5)
  - ABDOMINAL PAIN [None]
  - AURA [None]
  - GRAND MAL CONVULSION [None]
  - MUSCULOSKELETAL STIFFNESS [None]
  - PARTIAL SEIZURES [None]
